FAERS Safety Report 17113671 (Version 4)
Quarter: 2020Q2

REPORT INFORMATION
  Report Type: Report from Study
  Country: AU (occurrence: AU)
  Receive Date: 20191205
  Receipt Date: 20200403
  Transmission Date: 20200713
  Serious: Yes (Hospitalization)
  Sender: FDA-Public Use
  Company Number: AU-BIOGEN-2019BI00756679

PATIENT
  Age: 43 Year
  Sex: Female

DRUGS (3)
  1. TECFIDERA [Suspect]
     Active Substance: DIMETHYL FUMARATE
     Indication: MULTIPLE SCLEROSIS
     Dosage: STARTING DOSE
     Route: 048
     Dates: start: 20190615
  2. TECFIDERA [Suspect]
     Active Substance: DIMETHYL FUMARATE
     Route: 048
     Dates: start: 20190615
  3. TECFIDERA [Suspect]
     Active Substance: DIMETHYL FUMARATE
     Route: 048

REACTIONS (24)
  - Hernia [Unknown]
  - Hypotension [Unknown]
  - Emotional disorder [Unknown]
  - Hot flush [Unknown]
  - Weight increased [Unknown]
  - Multiple sclerosis relapse [Unknown]
  - Diarrhoea [Not Recovered/Not Resolved]
  - Headache [Unknown]
  - Procedural pain [Unknown]
  - Intentional product misuse [Unknown]
  - Abdominal pain [Not Recovered/Not Resolved]
  - Blood glucose abnormal [Unknown]
  - Prescribed underdose [Unknown]
  - Anxiety [Not Recovered/Not Resolved]
  - Stress [Not Recovered/Not Resolved]
  - Flushing [Recovered/Resolved with Sequelae]
  - Pruritus [Unknown]
  - Benign neoplasm [Unknown]
  - Abdominal distension [Not Recovered/Not Resolved]
  - Malignant melanoma [Unknown]
  - Polyp [Unknown]
  - Pollakiuria [Not Recovered/Not Resolved]
  - Malaise [Unknown]
  - Joint swelling [Not Recovered/Not Resolved]

NARRATIVE: CASE EVENT DATE: 201906
